FAERS Safety Report 16530530 (Version 2)
Quarter: 2019Q3

REPORT INFORMATION
  Report Type: Spontaneous
  Country: GR (occurrence: GR)
  Receive Date: 20190704
  Receipt Date: 20190715
  Transmission Date: 20191004
  Serious: Yes (Other)
  Sender: FDA-Public Use
  Company Number: GR-UCBSA-2019027151

PATIENT
  Age: 18 Month
  Sex: Male
  Weight: 9.5 kg

DRUGS (3)
  1. KEPPRA [Suspect]
     Active Substance: LEVETIRACETAM
     Indication: MYOCLONIC EPILEPSY
     Dosage: UNK
     Route: 048
     Dates: start: 201906, end: 2019
  2. SABRIL [Concomitant]
     Active Substance: VIGABATRIN
     Indication: SEIZURE
     Dosage: 250 MILLIGRAM, 2X/DAY (BID)
     Route: 048
     Dates: start: 201906
  3. KEPPRA [Suspect]
     Active Substance: LEVETIRACETAM
     Dosage: 150 MILLILITER, 2X/DAY (BID)
     Route: 048
     Dates: start: 2019

REACTIONS (3)
  - Product prescribing error [Unknown]
  - Product taste abnormal [Unknown]
  - Seizure [Recovering/Resolving]

NARRATIVE: CASE EVENT DATE: 201906
